FAERS Safety Report 15764559 (Version 1)
Quarter: 2018Q4

REPORT INFORMATION
  Report Type: Spontaneous
  Country: FR (occurrence: FR)
  Receive Date: 20181227
  Receipt Date: 20181227
  Transmission Date: 20190205
  Serious: Yes (Hospitalization)
  Sender: FDA-Public Use
  Company Number: FR-SUN PHARMACEUTICAL INDUSTRIES LTD-2018RR-194637

PATIENT
  Age: 90 Year
  Sex: Female
  Weight: 71 kg

DRUGS (6)
  1. PAROXETINE. [Suspect]
     Active Substance: PAROXETINE
     Indication: DEPRESSION
     Dosage: 20 MILLIGRAM, DAILY
     Route: 048
     Dates: end: 20180713
  2. INEXIUM 20 MG, COMPRIME GASTRO-RESISTANT [Suspect]
     Active Substance: ESOMEPRAZOLE
     Indication: PRODUCT USED FOR UNKNOWN INDICATION
     Dosage: 1 DOSAGE FORM, DAILY
     Route: 048
  3. KARDEGIC [Concomitant]
     Active Substance: ASPIRIN DL-LYSINE
     Indication: HYPERTROPHIC CARDIOMYOPATHY
     Dosage: LE MIDI
     Route: 048
  4. TEMERIT 5 MG, COMPRIME QUADRISECABLE [Concomitant]
     Active Substance: NEBIVOLOL HYDROCHLORIDE
     Indication: HYPERTROPHIC CARDIOMYOPATHY
     Dosage: LE MATIN
     Route: 048
  5. SERESTA 10 MG, COMPRIME [Concomitant]
     Active Substance: OXAZEPAM
     Indication: DEPRESSION
     Dosage: 3 DOSAGE FORM, DAILY
     Route: 048
     Dates: start: 20180712
  6. DAFALGAN [Concomitant]
     Active Substance: ACETAMINOPHEN
     Indication: PRODUCT USED FOR UNKNOWN INDICATION
     Dosage: 3 GRAM, DAILY
     Route: 048

REACTIONS (3)
  - Hyponatraemia [Recovered/Resolved]
  - Malaise [Recovered/Resolved]
  - Balance disorder [Recovered/Resolved]

NARRATIVE: CASE EVENT DATE: 20180705
